FAERS Safety Report 14165476 (Version 3)
Quarter: 2017Q4

REPORT INFORMATION
  Report Type: Spontaneous
  Country: AU (occurrence: AU)
  Receive Date: 20171107
  Receipt Date: 20171208
  Transmission Date: 20180321
  Serious: Yes (Other)
  Sender: FDA-Public Use
  Company Number: AU-UCBSA-2017043816

PATIENT
  Sex: Female

DRUGS (7)
  1. EPILIM [Concomitant]
     Active Substance: VALPROATE SODIUM
     Indication: EPILEPSY
     Dosage: UNK
  2. TRILEPTAL [Concomitant]
     Active Substance: OXCARBAZEPINE
     Indication: EPILEPSY
  3. NEURONTIN [Suspect]
     Active Substance: GABAPENTIN
     Indication: EPILEPSY
     Dosage: UNK
  4. TEGRETOL [Suspect]
     Active Substance: CARBAMAZEPINE
     Indication: EPILEPSY
  5. VIMPAT [Suspect]
     Active Substance: LACOSAMIDE
     Indication: EPILEPSY
     Dosage: UNK
  6. VIMPAT [Suspect]
     Active Substance: LACOSAMIDE
     Dosage: 75 MG, 2X/DAY (BID)
  7. DILANTIN [Concomitant]
     Active Substance: PHENYTOIN
     Indication: EPILEPSY

REACTIONS (9)
  - Depression [Unknown]
  - Nausea [Unknown]
  - Infection [Unknown]
  - Intentional product misuse [Unknown]
  - Epilepsy [Not Recovered/Not Resolved]
  - Diplopia [Unknown]
  - Fatigue [Unknown]
  - Nasopharyngitis [Unknown]
  - Drug intolerance [Unknown]
